FAERS Safety Report 15170587 (Version 2)
Quarter: 2018Q3

REPORT INFORMATION
  Report Type: Spontaneous
  Country: US (occurrence: US)
  Receive Date: 20180720
  Receipt Date: 20180821
  Transmission Date: 20181010
  Serious: Yes (Death, Life-Threatening)
  Sender: FDA-Public Use
  Company Number: US-ROCHE-2156856

PATIENT
  Age: 76 Year
  Sex: Male
  Weight: 105.78 kg

DRUGS (5)
  1. NICARDIPINE [Concomitant]
     Active Substance: NICARDIPINE
     Indication: BLOOD PRESSURE MEASUREMENT
     Dosage: ONCE
     Route: 042
     Dates: start: 20180715, end: 20180715
  2. ONDANSETRON [Concomitant]
     Active Substance: ONDANSETRON
     Route: 042
     Dates: start: 20180715, end: 20180715
  3. ACTIVASE [Suspect]
     Active Substance: ALTEPLASE
     Indication: ANDROGEN INSENSITIVITY SYNDROME
  4. IOPAMIDOL [Concomitant]
     Active Substance: IOPAMIDOL
     Dosage: ONCE
     Route: 042
     Dates: start: 20180715, end: 20180715
  5. ACTIVASE [Suspect]
     Active Substance: ALTEPLASE
     Indication: CEREBROVASCULAR ACCIDENT
     Dosage: ONCE
     Route: 042
     Dates: start: 20180715, end: 20180715

REACTIONS (2)
  - Haemorrhage intracranial [Not Recovered/Not Resolved]
  - Death [Fatal]

NARRATIVE: CASE EVENT DATE: 20180715
